FAERS Safety Report 8954452 (Version 2)
Quarter: 2012Q4

REPORT INFORMATION
  Report Type: 
  Country: CN (occurrence: CN)
  Receive Date: 20121210
  Receipt Date: 20121231
  Transmission Date: 20130627
  Serious: Yes (Other)
  Sender: FDA-Public Use
  Company Number: PHHY2012CN112639

PATIENT
  Age: 67 Year
  Sex: Female

DRUGS (1)
  1. MIACALCIC [Suspect]
     Indication: BONE PAIN
     Dosage: UNK UKN, UNK
     Route: 045
     Dates: start: 20121203, end: 20121203

REACTIONS (4)
  - Glaucoma [Recovered/Resolved]
  - Eye pain [Recovered/Resolved]
  - Lacrimation increased [Recovered/Resolved]
  - Blindness unilateral [Recovered/Resolved]
